FAERS Safety Report 6645775-6 (Version None)
Quarter: 2010Q1

REPORT INFORMATION
  Report Type: 
  Country: None (occurrence: None)
  Receive Date: 20100309
  Receipt Date: 20100125
  Transmission Date: 20100710
  Serious: Yes (Other)
  Sender: FDA-Public Use
  Company Number: 2010SP005560

PATIENT
  Age: 38 Year
  Sex: Female

DRUGS (6)
  1. SAPHRIS [Suspect]
     Indication: DRUG USE FOR UNKNOWN INDICATION
     Dosage: 10 MG; ONCE; SL
     Route: 060
  2. SEROQUEL [Concomitant]
  3. ADDERALL 30 [Concomitant]
  4. ALVESCO [Concomitant]
  5. LAMICTAL CD [Concomitant]
  6. XANAX [Concomitant]

REACTIONS (4)
  - DYSGEUSIA [None]
  - DYSTONIA [None]
  - HYPOAESTHESIA ORAL [None]
  - PHARYNGEAL HYPOAESTHESIA [None]
